FAERS Safety Report 9461678 (Version 2)
Quarter: 2013Q3

REPORT INFORMATION
  Report Type: Spontaneous
  Country: JP (occurrence: JP)
  Receive Date: 20130816
  Receipt Date: 20130927
  Transmission Date: 20140515
  Serious: Yes (Other)
  Sender: FDA-Public Use
  Company Number: JP-JNJFOC-20130711012

PATIENT
  Age: 3 Year
  Sex: Male

DRUGS (2)
  1. FINIBAX [Suspect]
     Indication: PANCREATITIS BACTERIAL
     Route: 041
     Dates: start: 20130703, end: 20130711
  2. INTRAVENOUS HYPERALIMENTATION [Suspect]
     Indication: LEUKAEMIA
     Route: 041
     Dates: start: 20130616, end: 20130711

REACTIONS (1)
  - Hepatic function abnormal [Recovered/Resolved]
